FAERS Safety Report 7137452-2 (Version None)
Quarter: 2010Q4

REPORT INFORMATION
  Report Type: 
  Country: None (occurrence: None)
  Receive Date: 20101206
  Receipt Date: 20090602
  Transmission Date: 20110411
  Serious: Yes (Death)
  Sender: FDA-Public Use
  Company Number: US-ACTELION-A-US2009-27918

PATIENT

DRUGS (2)
  1. TRACLEER [Suspect]
     Indication: COR PULMONALE CHRONIC
     Dosage: UNK MG, UNK
     Route: 048
     Dates: start: 20080111, end: 20090514
  2. REMODULIN [Concomitant]

REACTIONS (1)
  - DEATH [None]
